FAERS Safety Report 6203460-9 (Version None)
Quarter: 2009Q2

REPORT INFORMATION
  Report Type: 
  Country: None (occurrence: None)
  Receive Date: 20090527
  Receipt Date: 20090515
  Transmission Date: 20091009
  Serious: Yes (Hospitalization)
  Sender: FDA-Public Use
  Company Number: FR-ELI_LILLY_AND_COMPANY-FR200905003657

PATIENT
  Sex: Male

DRUGS (3)
  1. CYMBALTA [Suspect]
     Dosage: 60 MG, DAILY (1/D)
     Route: 048
     Dates: start: 20090201, end: 20090506
  2. ANDROCUR [Concomitant]
     Dosage: UNK, UNKNOWN
     Route: 048
  3. ANTIVIRALS NOS [Concomitant]
     Indication: HIV INFECTION
     Dosage: UNK, UNKNOWN
     Route: 048

REACTIONS (1)
  - HEPATOCELLULAR INJURY [None]
